FAERS Safety Report 24705902 (Version 2)
Quarter: 2025Q1

REPORT INFORMATION
  Report Type: Spontaneous
  Country: US (occurrence: US)
  Receive Date: 20241206
  Receipt Date: 20250113
  Transmission Date: 20250409
  Serious: No
  Sender: BAYER HEALTHCARE LLC
  Company Number: US-BAYER-2024A169299

PATIENT
  Age: 64 Year
  Sex: Female

DRUGS (1)
  1. ALKA-SELTZER GOLD [Suspect]
     Active Substance: ANHYDROUS CITRIC ACID\POTASSIUM BICARBONATE\SODIUM BICARBONATE
     Indication: Lyme disease
     Route: 048
     Dates: start: 2020

REACTIONS (2)
  - Drug effective for unapproved indication [None]
  - Intentional product use issue [None]
